FAERS Safety Report 21109424 (Version 1)
Quarter: 2022Q3

REPORT INFORMATION
  Report Type: Spontaneous
  Country: None (occurrence: US)
  Receive Date: 20220721
  Receipt Date: 20220721
  Transmission Date: 20221027
  Serious: No
  Sender: FDA-Public Use
  Company Number: US-Bio Products Laboratory Ltd-2131074

PATIENT
  Age: 49 Year
  Sex: Male

DRUGS (4)
  1. HUMAN IMMUNOGLOBULIN G [Suspect]
     Active Substance: HUMAN IMMUNOGLOBULIN G
     Indication: Neurosarcoidosis
     Route: 042
  2. HUMIRA [Concomitant]
     Active Substance: ADALIMUMAB
  3. METHOTREXATE [Concomitant]
     Active Substance: METHOTREXATE
  4. PREDNISONE [Concomitant]
     Active Substance: PREDNISONE

REACTIONS (3)
  - Inhibitory drug interaction [Unknown]
  - Off label use [Unknown]
  - Drug ineffective for unapproved indication [Unknown]
